FAERS Safety Report 19025522 (Version 1)
Quarter: 2021Q1

REPORT INFORMATION
  Report Type: Spontaneous
  Country: US (occurrence: US)
  Receive Date: 20210318
  Receipt Date: 20210318
  Transmission Date: 20210420
  Serious: Yes (Hospitalization)
  Sender: FDA-Public Use
  Company Number: None

PATIENT
  Age: 55 Year
  Sex: Female
  Weight: 94.95 kg

DRUGS (11)
  1. ALBUTEROL. [Concomitant]
     Active Substance: ALBUTEROL
     Dates: start: 20210308
  2. DESLORATADINE. [Concomitant]
     Active Substance: DESLORATADINE
     Dates: start: 20200902
  3. VENLAFAXINE XR [Concomitant]
     Active Substance: VENLAFAXINE HYDROCHLORIDE
     Dates: start: 20200730
  4. MV?MN/IRONFUM/FA/OMEGA3,6,9 [Concomitant]
  5. FLUTICASONE. [Concomitant]
     Active Substance: FLUTICASONE
     Dates: start: 20201022
  6. PROPANOLOL ER [Concomitant]
     Dates: start: 20200729
  7. BAMLANIVIMAB. [Suspect]
     Active Substance: BAMLANIVIMAB
     Indication: COVID-19
     Dosage: ?          OTHER FREQUENCY:ONCE;?
     Route: 042
     Dates: start: 20210309, end: 20210309
  8. MIRTAZAPINE. [Concomitant]
     Active Substance: MIRTAZAPINE
     Dates: start: 20200729
  9. GLUCOSAMINE CHONDROITIN [Concomitant]
     Active Substance: CHONDROITIN SULFATE (BOVINE)\GLUCOSAMINE HYDROCHLORIDE
  10. TESSALON [Concomitant]
     Active Substance: BENZONATATE
     Dates: start: 20210310
  11. MELATONIN [Concomitant]
     Active Substance: MELATONIN

REACTIONS (9)
  - Acute kidney injury [None]
  - Acute respiratory distress syndrome [None]
  - Urinary tract infection [None]
  - Haematemesis [None]
  - Septic shock [None]
  - Haematochezia [None]
  - COVID-19 pneumonia [None]
  - Acute respiratory failure [None]
  - Laryngeal oedema [None]

NARRATIVE: CASE EVENT DATE: 20210313
